FAERS Safety Report 5345312-2 (Version None)
Quarter: 2007Q2

REPORT INFORMATION
  Report Type: 
  Country: None (occurrence: None)
  Receive Date: 20070601
  Receipt Date: 20070523
  Transmission Date: 20071010
  Serious: Yes (Death)
  Sender: FDA-Public Use
  Company Number: 2007SP010098

PATIENT

DRUGS (9)
  1. TEMODAR [Suspect]
     Indication: DRUG USE FOR UNKNOWN INDICATION
  2. TEMODAR [Suspect]
  3. TEMODAR [Suspect]
  4. TEMODAR [Suspect]
  5. TEMODAR [Suspect]
  6. TEMODAR [Suspect]
  7. TEMODAR [Suspect]
  8. TEMODAR [Suspect]
  9. TEMODAR [Suspect]

REACTIONS (1)
  - DEATH [None]
